FAERS Safety Report 10076219 (Version 2)
Quarter: 2014Q2

REPORT INFORMATION
  Report Type: Spontaneous
  Country: IN (occurrence: IN)
  Receive Date: 20140414
  Receipt Date: 20140415
  Transmission Date: 20141212
  Serious: Yes (Other)
  Sender: FDA-Public Use
  Company Number: IN-009507513-1404IND006878

PATIENT
  Sex: Male

DRUGS (1)
  1. JANUMET [Suspect]
     Indication: DIABETES MELLITUS
     Dosage: 2X/ DAY
     Route: 048

REACTIONS (2)
  - Gastritis [Not Recovered/Not Resolved]
  - Sleep disorder [Not Recovered/Not Resolved]
